FAERS Safety Report 23420583 (Version 3)
Quarter: 2024Q2

REPORT INFORMATION
  Report Type: Other
  Country: CA (occurrence: None)
  Receive Date: 20240119
  Receipt Date: 20240403
  Transmission Date: 20240716
  Serious: Yes (Other)
  Sender: FDA-Public Use
  Company Number: CA-ROCHE-3492919

PATIENT
  Sex: Male

DRUGS (1)
  1. OCREVUS [Suspect]
     Active Substance: OCRELIZUMAB
     Indication: Relapsing-remitting multiple sclerosis
     Dosage: 300 MG AT DAY 0 AND 14, THEN 600 MG EVERY 6 MONTH
     Route: 042
     Dates: start: 20160101

REACTIONS (7)
  - Immunodeficiency [Unknown]
  - Influenza [Unknown]
  - Illness [Unknown]
  - Balance disorder [Unknown]
  - COVID-19 [Unknown]
  - Paralysis [Unknown]
  - Nasopharyngitis [Unknown]
